FAERS Safety Report 8392569-X (Version None)
Quarter: 2012Q2

REPORT INFORMATION
  Report Type: 
  Country: None (occurrence: None)
  Receive Date: 20120529
  Receipt Date: 20120521
  Transmission Date: 20120825
  Serious: Yes (Other)
  Sender: FDA-Public Use
  Company Number: SK-MERCK-1205USA03412

PATIENT
  Age: 62 Year
  Sex: Female
  Weight: 97 kg

DRUGS (10)
  1. ZETIA [Suspect]
     Indication: HYPERCHOLESTEROLAEMIA
     Route: 048
     Dates: start: 20120419, end: 20120427
  2. PREDUCTAL MR [Concomitant]
     Route: 065
  3. ASPIRIN [Concomitant]
     Route: 065
  4. ZETIA [Suspect]
     Indication: ATHEROSCLEROSIS PROPHYLAXIS
     Route: 048
     Dates: start: 20120419, end: 20120427
  5. ATACAND [Concomitant]
     Route: 065
  6. METHOTREXATE [Concomitant]
     Route: 065
     Dates: start: 20110101
  7. NEBIVOLOL HCL [Concomitant]
     Route: 065
     Dates: start: 20070101
  8. NORVASC [Concomitant]
     Route: 065
     Dates: start: 20070101
  9. CORVATON [Concomitant]
     Route: 065
     Dates: start: 20070101
  10. FOLIC ACID [Concomitant]
     Route: 065

REACTIONS (2)
  - ABDOMINAL PAIN [None]
  - BRONCHOSPASM [None]
